FAERS Safety Report 20771544 (Version 4)
Quarter: 2022Q3

REPORT INFORMATION
  Report Type: Spontaneous
  Country: US (occurrence: None)
  Receive Date: 20220430
  Receipt Date: 20220914
  Transmission Date: 20221027
  Serious: Yes (Other)
  Sender: FDA-Public Use
  Company Number: US-ROCHE-3084296

PATIENT
  Age: 26 Year
  Sex: Male

DRUGS (2)
  1. HEMLIBRA [Suspect]
     Active Substance: EMICIZUMAB-KXWH
     Indication: Factor VIII deficiency
     Dosage: 150 MG/0.7 ML
     Route: 058
     Dates: start: 202112
  2. NUWIQ [Concomitant]
     Active Substance: ANTIHEMOPHILIC FACTOR, HUMAN RECOMBINANT

REACTIONS (4)
  - Testicular haemorrhage [Not Recovered/Not Resolved]
  - Renal haemorrhage [Not Recovered/Not Resolved]
  - Depression [Unknown]
  - Haemorrhage [Unknown]

NARRATIVE: CASE EVENT DATE: 20220728
